FAERS Safety Report 10749643 (Version 1)
Quarter: 2015Q1

REPORT INFORMATION
  Report Type: Spontaneous
  Country: VN (occurrence: VN)
  Receive Date: 20150129
  Receipt Date: 20150129
  Transmission Date: 20150721
  Serious: Yes (Hospitalization, Other)
  Sender: FDA-Public Use
  Company Number: VN-MYLANLABS-2015M1002161

PATIENT

DRUGS (8)
  1. RIFAMPIN. [Suspect]
     Active Substance: RIFAMPIN
     Dosage: 15 MG/KG
     Route: 065
  2. LAMIVUDINE. [Suspect]
     Active Substance: LAMIVUDINE
     Indication: HIV INFECTION
     Route: 065
  3. ISONIAZID. [Concomitant]
     Active Substance: ISONIAZID
     Dosage: 10 MG/KG
     Route: 065
  4. RIFAMPIN. [Suspect]
     Active Substance: RIFAMPIN
     Indication: BOVINE TUBERCULOSIS
     Dosage: 10 MG/KG
     Route: 065
  5. ISONIAZID. [Concomitant]
     Active Substance: ISONIAZID
     Indication: BOVINE TUBERCULOSIS
     Dosage: 5 MG/KG
     Route: 065
  6. ABACAVIR [Suspect]
     Active Substance: ABACAVIR
     Indication: HIV INFECTION
     Route: 065
  7. PYRAZINAMIDE. [Concomitant]
     Active Substance: PYRAZINAMIDE
     Indication: BOVINE TUBERCULOSIS
     Dosage: 25 MG/KG
     Route: 065
  8. STAVUDINE. [Suspect]
     Active Substance: STAVUDINE
     Route: 065

REACTIONS (2)
  - Pathogen resistance [Unknown]
  - Immune reconstitution inflammatory syndrome [Unknown]
